FAERS Safety Report 11311329 (Version 6)
Quarter: 2021Q4

REPORT INFORMATION
  Report Type: Report from Study
  Country: CA (occurrence: CA)
  Receive Date: 20150727
  Receipt Date: 20211105
  Transmission Date: 20220303
  Serious: Yes (Hospitalization, Other)
  Sender: FDA-Public Use
  Company Number: PHHY2015CA060874

PATIENT
  Age: 80 Year
  Sex: Female

DRUGS (8)
  1. SANDOSTATIN [Suspect]
     Active Substance: OCTREOTIDE ACETATE
     Indication: Neuroendocrine carcinoma metastatic
     Dosage: UNK UNK, ONCE/SINGLE
     Route: 058
     Dates: start: 20150415, end: 20150415
  2. SANDOSTATIN [Suspect]
     Active Substance: OCTREOTIDE ACETATE
  3. SANDOSTATIN [Suspect]
     Active Substance: OCTREOTIDE ACETATE
  4. SANDOSTATIN LAR DEPOT [Suspect]
     Active Substance: OCTREOTIDE ACETATE
     Indication: Neuroendocrine carcinoma metastatic
     Dosage: 30 MG, QMO (EVERY 4 WEEKS)
     Route: 030
     Dates: start: 20150417
  5. VENLAFAXINE [Concomitant]
     Active Substance: VENLAFAXINE HYDROCHLORIDE
     Indication: Product used for unknown indication
     Dosage: 37.5 MG, QD
     Route: 065
  6. METFORMIN [Concomitant]
     Active Substance: METFORMIN HYDROCHLORIDE
     Indication: Product used for unknown indication
     Dosage: 250 MG, BID
     Route: 065
  7. SENNOSIDES [Concomitant]
     Active Substance: SENNOSIDES
     Indication: Abdominal discomfort
     Dosage: 2 DF, QD
     Route: 065
  8. CLOTRIMAZOLE [Concomitant]
     Active Substance: CLOTRIMAZOLE
     Indication: Product used for unknown indication
     Dosage: UNK UNK, BID (APPLY TOPICALLY TO ABDOMINAL FOLDS TWICE A DAY AS NEEDED)
     Route: 061

REACTIONS (25)
  - Fall [Unknown]
  - Dementia [Unknown]
  - Diabetes mellitus [Unknown]
  - Blood pressure increased [Unknown]
  - Nervousness [Unknown]
  - Respiratory rate increased [Unknown]
  - Pain [Unknown]
  - Body temperature decreased [Unknown]
  - Herpes zoster [Not Recovered/Not Resolved]
  - Pruritus [Not Recovered/Not Resolved]
  - Malaise [Unknown]
  - Nasopharyngitis [Recovered/Resolved]
  - Memory impairment [Not Recovered/Not Resolved]
  - Eye pain [Unknown]
  - Lymphadenopathy [Unknown]
  - Insomnia [Unknown]
  - Anxiety [Unknown]
  - Fear [Not Recovered/Not Resolved]
  - Heart rate irregular [Unknown]
  - Diarrhoea [Unknown]
  - Confusional state [Not Recovered/Not Resolved]
  - Psychiatric symptom [Unknown]
  - Depression [Unknown]
  - Injection site haemorrhage [Unknown]
  - Needle issue [Unknown]

NARRATIVE: CASE EVENT DATE: 20150515
